FAERS Safety Report 4625358-X (Version None)
Quarter: 2005Q2

REPORT INFORMATION
  Report Type: 
  Country: None (occurrence: None)
  Receive Date: 20050401
  Receipt Date: 20050321
  Transmission Date: 20051028
  Serious: Yes (Hospitalization, Other)
  Sender: FDA-Public Use
  Company Number: NL-GLAXOSMITHKLINE-B0376106A

PATIENT
  Age: 58 Year
  Sex: Female

DRUGS (3)
  1. LAMOTRIGINE [Suspect]
     Indication: DRUG USE FOR UNKNOWN INDICATION
     Dosage: 25MG PER DAY
     Route: 065
     Dates: start: 20050225
  2. DEPAKENE [Concomitant]
     Dates: end: 20050220
  3. OXAZEPAM [Concomitant]

REACTIONS (3)
  - CHEST DISCOMFORT [None]
  - PULMONARY EMBOLISM [None]
  - VERTIGO [None]
